FAERS Safety Report 8585390-0 (Version None)
Quarter: 2012Q2

REPORT INFORMATION
  Report Type: 
  Country: None (occurrence: None)
  Receive Date: 20120423
  Receipt Date: 20100127
  Transmission Date: 20120825
  Serious: Yes (Hospitalization, Other)
  Sender: FDA-Public Use
  Company Number: PHEH2010US01513

PATIENT
  Sex: Female

DRUGS (1)
  1. EXJADE [Suspect]
     Dosage: 500, QD, ORAL
     Route: 048
     Dates: start: 20080114, end: 20091027

REACTIONS (2)
  - TREATMENT NONCOMPLIANCE [None]
  - SICKLE CELL ANAEMIA WITH CRISIS [None]
